FAERS Safety Report 18332581 (Version 1)
Quarter: 2020Q3

REPORT INFORMATION
  Report Type: Spontaneous
  Country: US (occurrence: US)
  Receive Date: 20200930
  Receipt Date: 20200930
  Transmission Date: 20201103
  Serious: No
  Sender: FDA-Public Use
  Company Number: US-009507513-2009USA011663

PATIENT
  Age: 37 Year
  Sex: Male

DRUGS (2)
  1. ISENTRESS [Suspect]
     Active Substance: RALTEGRAVIR POTASSIUM
     Indication: HUMAN T-CELL LYMPHOTROPIC VIRUS TYPE I INFECTION
     Route: 048
  2. CYCLOPHOSPHAMIDE (+) DOXORUBICIN (+) ETOPOSIDE (+) PREDNISONE (+) VINC [Concomitant]
     Active Substance: CYCLOPHOSPHAMIDE\DOXORUBICIN\ETOPOSIDE\PREDNISONE\VINCRISTINE
     Indication: ADULT T-CELL LYMPHOMA/LEUKAEMIA

REACTIONS (1)
  - Product use in unapproved indication [Unknown]
